FAERS Safety Report 4319048-0 (Version None)
Quarter: 2004Q1

REPORT INFORMATION
  Report Type: 
  Country: None (occurrence: None)
  Receive Date: 20040312
  Receipt Date: 20031104
  Transmission Date: 20041129
  Serious: Yes (Other)
  Sender: FDA-Public Use
  Company Number: 03-314-0749

PATIENT
  Age: 59 Year
  Sex: Female

DRUGS (10)
  1. DILTIAZEM HCI INJ., 25MG, BEN VENUE LABS [Suspect]
     Indication: ATRIAL FIBRILLATION
     Dosage: IV
     Route: 042
     Dates: start: 20031103
  2. ASPIRIN [Concomitant]
  3. CABAMAZEPINE [Concomitant]
  4. ROCEPHIN [Concomitant]
  5. AMPICILLIN [Concomitant]
  6. ZOCOR [Concomitant]
  7. ZOFRAN [Concomitant]
  8. ENOXIPARIN [Concomitant]
  9. METOPROLOL [Concomitant]
  10. PROTONIX [Concomitant]

REACTIONS (2)
  - RASH [None]
  - URTICARIA [None]
